FAERS Safety Report 14354754 (Version 1)
Quarter: 2018Q1

REPORT INFORMATION
  Report Type: Spontaneous
  Country: FR (occurrence: FR)
  Receive Date: 20180105
  Receipt Date: 20180105
  Transmission Date: 20180509
  Serious: Yes (Hospitalization)
  Sender: FDA-Public Use
  Company Number: FR-AUROBINDO-AUR-APL-2018-000149

PATIENT
  Age: 79 Year
  Sex: Male
  Weight: 90 kg

DRUGS (3)
  1. VITAMINE B1 B6 BAYER [Suspect]
     Active Substance: PYRIDOXINE HYDROCHLORIDE\THIAMINE HYDROCHLORIDE
     Indication: PRODUCT USED FOR UNKNOWN INDICATION
     Dosage: ()
     Route: 048
     Dates: start: 20171110, end: 20171112
  2. VITAMIN K [Suspect]
     Active Substance: PHYTONADIONE
     Indication: PROTHROMBIN TIME RATIO DECREASED
     Dosage: UNK
     Route: 048
     Dates: start: 20171111, end: 20171113
  3. CETIRIZINE [Suspect]
     Active Substance: CETIRIZINE HYDROCHLORIDE
     Indication: PRURITUS
     Dosage: IN TOTAL
     Route: 048
     Dates: start: 20171114, end: 20171114

REACTIONS (1)
  - Thrombocytopenia [Not Recovered/Not Resolved]

NARRATIVE: CASE EVENT DATE: 20171117
